FAERS Safety Report 23242822 (Version 2)
Quarter: 2023Q4

REPORT INFORMATION
  Report Type: Report from Study
  Country: US (occurrence: US)
  Receive Date: 20231129
  Receipt Date: 20231203
  Transmission Date: 20240109
  Serious: Yes (Hospitalization)
  Sender: FDA-Public Use
  Company Number: US-ABBVIE-5510551

PATIENT
  Sex: Male

DRUGS (1)
  1. HUMIRA [Suspect]
     Active Substance: ADALIMUMAB
     Indication: Rheumatoid arthritis
     Dosage: FORM STRENGTH: 40 MILLIGRAM, CITRATE FREE
     Route: 058
     Dates: start: 20160506

REACTIONS (2)
  - Pancreatolithiasis [Unknown]
  - Thrombosis [Unknown]
